FAERS Safety Report 4627441-1 (Version None)
Quarter: 2005Q1

REPORT INFORMATION
  Report Type: 
  Country: None (occurrence: None)
  Receive Date: 20050331
  Receipt Date: 20050323
  Transmission Date: 20050727
  Serious: Yes (Life-Threatening)
  Sender: FDA-Public Use
  Company Number: 2005P1000009

PATIENT
  Age: 20 Year
  Sex: Female

DRUGS (16)
  1. BUSULFEX [Suspect]
     Dosage: 144MG/D (36MG/DOS X 4TIMES) - (16 DOSES TOTAL ADMINISTERED); DR
     Dates: start: 20030501, end: 20030504
  2. CYCLOPHOSPHAMIDE [Suspect]
     Dosage: 2700 MG; DR
     Dates: start: 20030505, end: 20030505
  3. MESNA [Concomitant]
  4. BUSERELIN ACETATE [Concomitant]
  5. SULFAMETHOXAZOLE AND TRIMETHOPRIM [Concomitant]
  6. FLUCONAZOLE [Concomitant]
  7. PHENYTOIN [Concomitant]
  8. SENNOSIDE [Concomitant]
  9. CIPROFLOXACIN HYDROCHLORIDE [Concomitant]
  10. PENTAMIDINE ISETHIONATE [Concomitant]
  11. SALBUTAMOL SULFATE [Concomitant]
  12. LACTATED RINGER'S [Concomitant]
  13. METOCLOPRAMIDE [Concomitant]
  14. PIRENZEPINE HYDROCHLORIDE [Concomitant]
  15. GRANISETRON  HCL [Concomitant]
  16. ACYCLOVIR [Concomitant]

REACTIONS (5)
  - BONE MARROW TRANSPLANT [None]
  - CARDIOMYOPATHY [None]
  - CHEST PAIN [None]
  - ELECTROCARDIOGRAM ST SEGMENT DEPRESSION [None]
  - HEART RATE INCREASED [None]
